FAERS Safety Report 13579504 (Version 1)
Quarter: 2017Q2

REPORT INFORMATION
  Report Type: Spontaneous
  Country: US (occurrence: US)
  Receive Date: 20170524
  Receipt Date: 20170524
  Transmission Date: 20170830
  Serious: No
  Sender: FDA-Public Use
  Company Number: None

PATIENT
  Age: 47 Year
  Sex: Female
  Weight: 79.65 kg

DRUGS (1)
  1. BUPRENORPHINE AND NALOXONE [Suspect]
     Active Substance: BUPRENORPHINE\NALOXONE
     Indication: DRUG USE DISORDER
     Dosage: ?          OTHER FREQUENCY:1, 1/2, 1 (TID);?
     Route: 060
     Dates: start: 20170420, end: 20170517

REACTIONS (4)
  - Paraesthesia oral [None]
  - Ear discomfort [None]
  - Nausea [None]
  - Tongue disorder [None]

NARRATIVE: CASE EVENT DATE: 20170420
